FAERS Safety Report 8384320-4 (Version None)
Quarter: 2012Q2

REPORT INFORMATION
  Report Type: 
  Country: None (occurrence: None)
  Receive Date: 20120524
  Receipt Date: 20120515
  Transmission Date: 20120825
  Serious: Yes (Hospitalization)
  Sender: FDA-Public Use
  Company Number: FR-ASTRAZENECA-2012SE31675

PATIENT
  Age: 946 Month
  Sex: Male

DRUGS (9)
  1. CRESTOR [Suspect]
     Indication: DYSLIPIDAEMIA
     Route: 048
     Dates: start: 20050101, end: 20060501
  2. INSPIRA [Concomitant]
  3. BRICANYL [Concomitant]
     Route: 055
  4. ATROVENT [Concomitant]
     Route: 055
  5. LASIX [Concomitant]
     Dosage: 40 MG IN THE MORNING AND 40 MG AT NOON
     Route: 048
  6. CORDARONE [Suspect]
     Indication: ATRIAL FIBRILLATION
     Route: 048
     Dates: start: 20030101, end: 20060523
  7. LEVOTHYROXINE SODIUM [Concomitant]
     Route: 048
  8. DIGOXIN [Concomitant]
     Indication: ATRIAL FIBRILLATION
  9. BISOPROLOL FUMARATE [Suspect]
     Route: 048
     Dates: start: 20030101, end: 20060501

REACTIONS (5)
  - BUNDLE BRANCH BLOCK BILATERAL [None]
  - INTERSTITIAL LUNG DISEASE [None]
  - PULMONARY FIBROSIS [None]
  - INTRACARDIAC THROMBUS [None]
  - LEFT VENTRICULAR FAILURE [None]
